FAERS Safety Report 11761178 (Version 1)
Quarter: 2015Q4

REPORT INFORMATION
  Report Type: Spontaneous
  Country: US (occurrence: US)
  Receive Date: 20151120
  Receipt Date: 20151120
  Transmission Date: 20160304
  Serious: No
  Sender: FDA-Public Use
  Company Number: PHEH2015US023844

PATIENT
  Age: 73 Year
  Sex: Female

DRUGS (2)
  1. VIVELLE-DOT [Suspect]
     Active Substance: ESTRADIOL
     Indication: DEPRESSION
  2. VIVELLE-DOT [Suspect]
     Active Substance: ESTRADIOL
     Indication: MOOD SWINGS
     Route: 062

REACTIONS (1)
  - Off label use [Unknown]
